FAERS Safety Report 8901759 (Version 1)
Quarter: 2012Q4

REPORT INFORMATION
  Report Type: Spontaneous
  Country: IT (occurrence: None)
  Receive Date: 20121101
  Receipt Date: 20121101
  Transmission Date: 20130627
  Serious: Yes (Hospitalization)
  Sender: FDA-Public Use
  Company Number: GER/ITL/12/0026274

PATIENT
  Age: 80 Year
  Sex: Male

DRUGS (8)
  1. AMLODIPINE [Suspect]
     Indication: HYPERTENSION ARTERIAL
     Route: 048
     Dates: start: 20120101, end: 20120930
  2. RAMIPRIL (RAMIPRIL) [Suspect]
     Indication: HYPERTENSION ARTERIAL
     Route: 048
     Dates: start: 20120101, end: 20120930
  3. VENITRIN [Suspect]
     Indication: MYOCARDIAL ISCHEMIA
     Dosage: 1 Dosage forms
     Route: 062
     Dates: start: 20120101, end: 20120930
  4. ALDACTONE [Suspect]
     Indication: HYPERTENSION ARTERIAL
     Dosage: 1 Dosage forms
     Route: 048
     Dates: start: 20120101, end: 20120930
  5. BISOPROLOL [Suspect]
     Indication: HYPERTENSION ARTERIAL
     Route: 048
     Dates: start: 20120101, end: 20120930
  6. FUROSEMIDE (FUROSEMIDE) [Suspect]
     Indication: HYPERTENSION ARTERIAL
     Route: 048
     Dates: start: 20120101, end: 20120930
  7. COUMADIN (WARFARIN SODIUM) [Concomitant]
  8. LANOXIN (DIGOXIN) [Concomitant]

REACTIONS (3)
  - Acute pulmonary oedema [None]
  - Syncope [None]
  - Loss of consciousness [None]
